FAERS Safety Report 9505911 (Version 1)
Quarter: 2013Q1

REPORT INFORMATION
  Report Type: Spontaneous
  Country: US (occurrence: None)
  Receive Date: 20130219
  Receipt Date: 20130219
  Transmission Date: 20140127
  Serious: Yes (Other)
  Sender: FDA-Public Use
  Company Number: 1209USA009567

PATIENT
  Age: 59 Year
  Sex: Female
  Weight: 88.2 kg

DRUGS (4)
  1. ZOCOR [Suspect]
     Indication: BLOOD CHOLESTEROL INCREASED
     Route: 048
     Dates: start: 20110512, end: 201203
  2. ULTRAM (TRAMADOL HYDROCHLORIDE) [Concomitant]
  3. MELOXICAM [Concomitant]
  4. ISOCAOR (VERAPAMIL HYDROCHLORIDE) [Concomitant]

REACTIONS (3)
  - Myalgia [None]
  - Musculoskeletal pain [None]
  - Arthralgia [None]
